FAERS Safety Report 19905899 (Version 1)
Quarter: 2021Q3

REPORT INFORMATION
  Report Type: Report from Study
  Country: BR (occurrence: BR)
  Receive Date: 20210930
  Receipt Date: 20210930
  Transmission Date: 20211014
  Serious: Yes (Other)
  Sender: FDA-Public Use
  Company Number: NVSC2021BR215451

PATIENT
  Age: 75 Year
  Sex: Female

DRUGS (6)
  1. SYSTANE (HYPROMELLOSE 2910 (4000 MPA.S)) [Concomitant]
     Active Substance: HYPROMELLOSE 2910 (4000 MPA.S)
     Indication: EYE LUBRICATION THERAPY
     Dosage: 1 DRP, TID (RIGHT EYE)
     Route: 065
     Dates: start: 2014
  2. MAXIFLOX D [Concomitant]
     Indication: PRODUCT USED FOR UNKNOWN INDICATION
     Dosage: 1 DRP ON THE LEFT EYE (SHOULD BE USED AFTER VSIQQ APPLICATION)
     Route: 065
     Dates: start: 20210901
  3. VSIQQ [Suspect]
     Active Substance: BROLUCIZUMAB
     Indication: AGE-RELATED MACULAR DEGENERATION
     Dosage: UNK UNK, Q3MO
     Route: 031
     Dates: start: 20210831
  4. COMBIGAN [Concomitant]
     Active Substance: BRIMONIDINE TARTRATE\TIMOLOL MALEATE
     Indication: INTRAOCULAR PRESSURE FLUCTUATION
     Dosage: 1 DRP IN THE LEFT EYE
     Route: 065
     Dates: start: 2021
  5. OCUPRESS [Concomitant]
     Active Substance: CARTEOLOL HYDROCHLORIDE
     Indication: PRODUCT USED FOR UNKNOWN INDICATION
     Dosage: 1 DRP (IN LEFT EYE)
     Route: 065
     Dates: start: 2021
  6. NEOVITE LUTEIN [Concomitant]
     Indication: PRODUCT USED FOR UNKNOWN INDICATION
     Dosage: 1 DF, QD (EVERY DAY FOR 3 MONTHS, FOLLOWED BY A ONE MONTH PAUSE)
     Route: 048
     Dates: start: 2014

REACTIONS (14)
  - Skin hypertrophy [Not Recovered/Not Resolved]
  - Eye swelling [Recovering/Resolving]
  - Eye pain [Recovered/Resolved]
  - Vision blurred [Unknown]
  - Eye inflammation [Not Recovered/Not Resolved]
  - Eye pruritus [Not Recovered/Not Resolved]
  - Dark circles under eyes [Recovering/Resolving]
  - Eye irritation [Recovering/Resolving]
  - Visual impairment [Not Recovered/Not Resolved]
  - Eye pain [Not Recovered/Not Resolved]
  - Condition aggravated [Unknown]
  - Swelling face [Not Recovered/Not Resolved]
  - Skin discolouration [Not Recovered/Not Resolved]
  - Ocular hyperaemia [Recovering/Resolving]

NARRATIVE: CASE EVENT DATE: 20210831
